FAERS Safety Report 8478963-7 (Version None)
Quarter: 2012Q2

REPORT INFORMATION
  Report Type: 
  Country: None (occurrence: None)
  Receive Date: 20120629
  Receipt Date: 20120605
  Transmission Date: 20120825
  Serious: No
  Sender: FDA-Public Use
  Company Number: US-BAYER-2012-056858

PATIENT
  Sex: Female

DRUGS (2)
  1. ASPIRIN [Suspect]
     Route: 048
  2. ALEVE (CAPLET) [Suspect]
     Dosage: 2 TAB ONCE DAILY
     Route: 048
     Dates: start: 20120501, end: 20120604

REACTIONS (1)
  - ABDOMINAL DISCOMFORT [None]
